FAERS Safety Report 10855489 (Version 1)
Quarter: 2015Q1

REPORT INFORMATION
  Report Type: Spontaneous
  Country: US (occurrence: None)
  Receive Date: 20150218
  Receipt Date: 20150218
  Transmission Date: 20150721
  Serious: No
  Sender: FDA-Public Use
  Company Number: None

PATIENT
  Age: 73 Year
  Sex: Female
  Weight: 95.26 kg

DRUGS (10)
  1. CARVEDILOL. [Concomitant]
     Active Substance: CARVEDILOL
  2. BACLOFEN. [Concomitant]
     Active Substance: BACLOFEN
  3. FUROSEMIDE. [Concomitant]
     Active Substance: FUROSEMIDE
  4. VITAMIN D [Concomitant]
     Active Substance: CHOLECALCIFEROL
  5. TEMAZEPAM. [Concomitant]
     Active Substance: TEMAZEPAM
  6. SPIRONOLACTONE. [Concomitant]
     Active Substance: SPIRONOLACTONE
  7. SEROQUEL [Suspect]
     Active Substance: QUETIAPINE FUMARATE
     Indication: PRODUCT USED FOR UNKNOWN INDICATION
     Dosage: 2 TABLETS BY MOUTH AT BEDTIME
     Route: 048
     Dates: start: 20141219, end: 20150213
  8. LEVOTHYROXINE [Concomitant]
     Active Substance: LEVOTHYROXINE
  9. ASPIRN [Concomitant]
     Active Substance: ASPIRIN
  10. VITAMINS [Concomitant]
     Active Substance: VITAMINS

REACTIONS (4)
  - Nausea [None]
  - Drug prescribing error [None]
  - Feeling abnormal [None]
  - Dizziness [None]

NARRATIVE: CASE EVENT DATE: 20150214
